FAERS Safety Report 7545897-1 (Version None)
Quarter: 2011Q2

REPORT INFORMATION
  Report Type: 
  Country: None (occurrence: None)
  Receive Date: 20110607
  Receipt Date: 20110601
  Transmission Date: 20111010
  Serious: Yes (Death)
  Sender: FDA-Public Use
  Company Number: 1000021283

PATIENT
  Sex: Female

DRUGS (2)
  1. LEXAPRO [Suspect]
     Indication: DEPRESSION
     Dosage: TRANSPLACENTAL
     Route: 064
     Dates: start: 20030501, end: 20031104
  2. ZOLOFT [Suspect]
     Indication: DEPRESSION
     Dosage: TRANSPLACENTAL
     Route: 064
     Dates: start: 20030201, end: 20030501

REACTIONS (7)
  - HEART DISEASE CONGENITAL [None]
  - LEFT VENTRICULAR FAILURE [None]
  - CARDIAC VENTRICULAR DISORDER [None]
  - OBSTRUCTION [None]
  - AORTIC OCCLUSION [None]
  - MATERNAL DRUGS AFFECTING FOETUS [None]
  - POST PROCEDURAL COMPLICATION [None]
